FAERS Safety Report 4715591-0 (Version None)
Quarter: 2005Q3

REPORT INFORMATION
  Report Type: 
  Country: None (occurrence: None)
  Receive Date: 20050715
  Receipt Date: 20050715
  Transmission Date: 20060218
  Serious: Yes (Death, Other)
  Sender: FDA-Public Use
  Company Number: None

PATIENT
  Sex: Female
  Weight: 71.5 kg

DRUGS (4)
  1. DOCETAXEL [Suspect]
     Indication: BREAST CANCER
     Dosage: 825 MG TOTAL
     Dates: start: 20050630, end: 20050630
  2. DOXORUBICIN HCL [Suspect]
     Dosage: 82 MG TOTAL DOSAGE
     Dates: start: 20050630
  3. CYCLOPHOSPHAMIDE [Suspect]
     Dosage: 825 MG IV ON DAY 1
     Route: 042
     Dates: start: 20050630
  4. NEULASTA [Suspect]
     Dosage: 6 MG SQ
     Route: 058

REACTIONS (8)
  - BODY TEMPERATURE INCREASED [None]
  - CONFUSIONAL STATE [None]
  - HEART RATE INCREASED [None]
  - LETHARGY [None]
  - OXYGEN SATURATION DECREASED [None]
  - RESPIRATORY FAILURE [None]
  - SEPSIS [None]
  - SEPTIC SHOCK [None]
